FAERS Safety Report 22038730 (Version 2)
Quarter: 2023Q2

REPORT INFORMATION
  Report Type: Other
  Country: DE (occurrence: None)
  Receive Date: 20230227
  Receipt Date: 20230518
  Transmission Date: 20230721
  Serious: No
  Sender: FDA-Public Use
  Company Number: DE-ROCHE-3203438

PATIENT
  Age: 56 Year
  Sex: Female

DRUGS (4)
  1. OCREVUS [Suspect]
     Active Substance: OCRELIZUMAB
     Indication: Relapsing-remitting multiple sclerosis
     Dosage: 2ND INITIAL DOSE ON 16/OCT/2022
     Route: 042
     Dates: start: 20220930
  2. PREGABALIN [Concomitant]
     Active Substance: PREGABALIN
     Dosage: 1-0-1
  3. RIZATRIPTAN [Concomitant]
     Active Substance: RIZATRIPTAN
  4. METAMIZOLE [Concomitant]
     Active Substance: METAMIZOLE

REACTIONS (8)
  - Fatigue [Recovered/Resolved]
  - Infection susceptibility increased [Recovered/Resolved]
  - Nasopharyngitis [Recovered/Resolved]
  - Angular cheilitis [Not Recovered/Not Resolved]
  - Impaired healing [Not Recovered/Not Resolved]
  - Tendonitis [Not Recovered/Not Resolved]
  - Pain [Not Recovered/Not Resolved]
  - Migraine [Unknown]

NARRATIVE: CASE EVENT DATE: 20220930
